FAERS Safety Report 6122051-1 (Version None)
Quarter: 2009Q1

REPORT INFORMATION
  Report Type: 
  Country: None (occurrence: None)
  Receive Date: 20090316
  Receipt Date: 20090304
  Transmission Date: 20090719
  Serious: Yes (Other)
  Sender: FDA-Public Use
  Company Number: 2009AP000864

PATIENT
  Sex: Male

DRUGS (2)
  1. LAMOTRIGINE [Suspect]
     Dosage: 150 MG;TAB;PO
     Route: 048
  2. TEGRETOL [Suspect]
     Dosage: 400 MG;TAB;PO
     Route: 048

REACTIONS (3)
  - ANXIETY [None]
  - CONVULSION [None]
  - INCORRECT DOSE ADMINISTERED [None]
